FAERS Safety Report 17733732 (Version 2)
Quarter: 2021Q1

REPORT INFORMATION
  Report Type: Spontaneous
  Country: US (occurrence: US)
  Receive Date: 20200501
  Receipt Date: 20210115
  Transmission Date: 20210419
  Serious: No
  Sender: FDA-Public Use
  Company Number: US-JNJFOC-20200431721

PATIENT

DRUGS (1)
  1. IMODIUM MULTI?SYMPTOM RELIEF [Suspect]
     Active Substance: DIMETHICONE\LOPERAMIDE HYDROCHLORIDE
     Indication: DIARRHOEA
     Dosage: 4 TO 8 OF YOUR MULTIPLE SYMPTOM IMMODIUM
     Route: 048

REACTIONS (2)
  - Product packaging difficult to open [Unknown]
  - Incorrect dose administered [Unknown]
